FAERS Safety Report 14607861 (Version 1)
Quarter: 2018Q1

REPORT INFORMATION
  Report Type: Spontaneous
  Country: US (occurrence: US)
  Receive Date: 20180307
  Receipt Date: 20180307
  Transmission Date: 20180509
  Serious: Yes (Other)
  Sender: FDA-Public Use
  Company Number: US-MYLANLABS-2018M1014078

PATIENT
  Age: 27 Year
  Sex: Female

DRUGS (2)
  1. BUPROPION. [Suspect]
     Active Substance: BUPROPION
     Indication: PRODUCT USED FOR UNKNOWN INDICATION
     Dosage: 30 TABLETS OF 150 MG
     Route: 048
  2. ALPRAZOLAM. [Suspect]
     Active Substance: ALPRAZOLAM
     Indication: PRODUCT USED FOR UNKNOWN INDICATION
     Dosage: 30 TABLETS OF 0.5MG
     Route: 048

REACTIONS (9)
  - Tachycardia [Unknown]
  - Tremor [Unknown]
  - Suicide attempt [Recovering/Resolving]
  - Erythema multiforme [Recovering/Resolving]
  - Tachypnoea [Unknown]
  - Electrocardiogram QT prolonged [Recovered/Resolved]
  - Mental status changes [Unknown]
  - Intentional overdose [Recovering/Resolving]
  - Agitation [Unknown]
